FAERS Safety Report 13003112 (Version 1)
Quarter: 2016Q4

REPORT INFORMATION
  Report Type: Spontaneous
  Country: US (occurrence: US)
  Receive Date: 20161206
  Receipt Date: 20161206
  Transmission Date: 20170207
  Serious: Yes (Hospitalization)
  Sender: FDA-Public Use
  Company Number: None

PATIENT
  Age: 70 Year
  Sex: Female

DRUGS (18)
  1. ENBREL [Suspect]
     Active Substance: ETANERCEPT
     Indication: RHEUMATOID ARTHRITIS
     Route: 058
     Dates: start: 20131011
  2. FLONASE [Concomitant]
     Active Substance: FLUTICASONE PROPIONATE
  3. ZINC [Concomitant]
     Active Substance: ZINC\ZINC CHLORIDE
  4. AMLODIPINE [Concomitant]
     Active Substance: AMLODIPINE BESYLATE
  5. SINGULAIR [Concomitant]
     Active Substance: MONTELUKAST SODIUM
  6. SYNTHROID [Concomitant]
     Active Substance: LEVOTHYROXINE SODIUM
  7. CENTRUM [Concomitant]
     Active Substance: VITAMINS
  8. PREMARIN [Concomitant]
     Active Substance: ESTROGENS, CONJUGATED
  9. FISH OIL [Concomitant]
     Active Substance: FISH OIL
  10. CRESTOR [Concomitant]
     Active Substance: ROSUVASTATIN CALCIUM
  11. LISINOPRIL. [Concomitant]
     Active Substance: LISINOPRIL
  12. ZYPREXA [Concomitant]
     Active Substance: OLANZAPINE
  13. CALCIUM [Concomitant]
     Active Substance: CALCIUM
  14. FLAX SEED [Concomitant]
     Active Substance: FLAX SEED
  15. VITAMIN C [Concomitant]
     Active Substance: ASCORBIC ACID
  16. ENBREL [Suspect]
     Active Substance: ETANERCEPT
     Indication: PSORIATIC ARTHROPATHY
     Route: 058
     Dates: start: 20131011
  17. NORVASC [Concomitant]
     Active Substance: AMLODIPINE BESYLATE
  18. FOLIC ACID. [Concomitant]
     Active Substance: FOLIC ACID

REACTIONS (3)
  - Medical device implantation [None]
  - Therapy cessation [None]
  - Bone graft [None]

NARRATIVE: CASE EVENT DATE: 20161101
